FAERS Safety Report 6439234-3 (Version None)
Quarter: 2009Q4

REPORT INFORMATION
  Report Type: 
  Country: None (occurrence: None)
  Receive Date: 20091113
  Receipt Date: 20091102
  Transmission Date: 20100525
  Serious: Yes (Other)
  Sender: FDA-Public Use
  Company Number: JP-PFIZER INC-2009293362

PATIENT

DRUGS (1)
  1. SELARA [Suspect]
     Route: 048

REACTIONS (1)
  - RHABDOMYOLYSIS [None]
